FAERS Safety Report 6367706-9 (Version None)
Quarter: 2009Q3

REPORT INFORMATION
  Report Type: 
  Country: None (occurrence: None)
  Receive Date: 20090921
  Receipt Date: 20090907
  Transmission Date: 20100115
  Serious: Yes (Other)
  Sender: FDA-Public Use
  Company Number: TR-PFIZER INC-2009268361

PATIENT
  Age: 46 Year

DRUGS (6)
  1. REBOXETINE AND REBOXETINE MESILATE [Suspect]
     Indication: BIPOLAR I DISORDER
     Dosage: UNK
  2. SERTRALINE HCL [Suspect]
     Indication: BIPOLAR I DISORDER
     Dosage: UNK
  3. PRAMIPEXOLE [Suspect]
     Indication: BIPOLAR I DISORDER
     Dosage: 0.375 MG, 3X/DAY
  4. LITHIUM [Suspect]
     Indication: BIPOLAR I DISORDER
     Dosage: UNK
  5. LAMOTRIGINE [Suspect]
     Indication: BIPOLAR I DISORDER
     Dosage: UNK
  6. VENLAFAXINE [Suspect]
     Indication: BIPOLAR I DISORDER

REACTIONS (6)
  - DRUG INEFFECTIVE [None]
  - EJACULATION DISORDER [None]
  - FAECAL INCONTINENCE [None]
  - HYPOMANIA [None]
  - SLEEP DISORDER [None]
  - URINARY RETENTION [None]
